FAERS Safety Report 9226018 (Version 1)
Quarter: 2013Q2

REPORT INFORMATION
  Report Type: Spontaneous
  Country: US (occurrence: US)
  Receive Date: 20130411
  Receipt Date: 20130411
  Transmission Date: 20140414
  Serious: Yes (Other)
  Sender: FDA-Public Use
  Company Number: US-ASTRAZENECA-2013SE21622

PATIENT
  Sex: Female

DRUGS (1)
  1. PRILOSEC [Suspect]
     Indication: DYSPEPSIA
     Route: 048
     Dates: start: 20130301, end: 20130314

REACTIONS (2)
  - Intraocular pressure increased [Not Recovered/Not Resolved]
  - Eye disorder [Not Recovered/Not Resolved]
